FAERS Safety Report 8066894-6 (Version None)
Quarter: 2012Q1

REPORT INFORMATION
  Report Type: 
  Country: None (occurrence: None)
  Receive Date: 20120124
  Receipt Date: 20120110
  Transmission Date: 20120608
  Serious: Yes (Hospitalization)
  Sender: FDA-Public Use
  Company Number: PHHO2012ES001447

PATIENT
  Sex: Female
  Weight: 66 kg

DRUGS (4)
  1. AUY922 [Suspect]
     Indication: NON-SMALL CELL LUNG CANCER
     Dosage: 12145 MG WEEKLY
     Route: 042
     Dates: start: 20111220
  2. HEPARIN [Suspect]
  3. OMEPRAZOLE [Concomitant]
     Dosage: 20 MG, QD
     Route: 048
  4. INNOHEP [Concomitant]
     Indication: DEEP VEIN THROMBOSIS
     Dosage: 0.5 MG, QD
     Route: 058
     Dates: start: 20101201

REACTIONS (2)
  - HAEMOPTYSIS [None]
  - LUNG INFECTION [None]
